FAERS Safety Report 8967679 (Version 2)
Quarter: 2013Q1

REPORT INFORMATION
  Report Type: Spontaneous
  Country: US (occurrence: None)
  Receive Date: 20121206
  Receipt Date: 20130222
  Transmission Date: 20140127
  Serious: Yes (Death)
  Sender: FDA-Public Use
  Company Number: ADR-UNK-091

PATIENT
  Sex: 0

DRUGS (4)
  1. LAMIVUDINE+ZIDOVUDINE [Suspect]
     Indication: ACQUIRED IMMUNODEFICIENCY SYNDROME
     Dosage: 1 COURSE
     Dates: start: 20110201
  2. EFAVIRENZ (STOCRIN, EFV) [Concomitant]
  3. ZIDOVUDINE [Concomitant]
  4. ATAZANAVIR SULFATE (REYATAZ, ATV) [Concomitant]

REACTIONS (2)
  - Abortion induced [None]
  - Maternal drugs affecting foetus [None]
